FAERS Safety Report 17350867 (Version 6)
Quarter: 2020Q3

REPORT INFORMATION
  Report Type: Report from Study
  Country: US (occurrence: US)
  Receive Date: 20200130
  Receipt Date: 20200820
  Transmission Date: 20201102
  Serious: Yes (Other)
  Sender: FDA-Public Use
  Company Number: NVSC2020US016851

PATIENT
  Age: 61 Year
  Sex: Male

DRUGS (1)
  1. ENTRESTO [Suspect]
     Active Substance: SACUBITRIL\VALSARTAN
     Indication: CARDIAC FAILURE CHRONIC
     Dosage: 1 DF, BID (97MG SACUBITRIL /103MGVALSARTAN)
     Route: 048
     Dates: start: 201907

REACTIONS (12)
  - Weight increased [Unknown]
  - Nasopharyngitis [Recovering/Resolving]
  - Atrial fibrillation [Recovered/Resolved]
  - Influenza [Unknown]
  - Cough [Unknown]
  - Illness [Unknown]
  - Irritability [Unknown]
  - Therapeutic response unexpected [Unknown]
  - Product dose omission issue [Recovered/Resolved]
  - Atrial flutter [Recovered/Resolved]
  - Pain in extremity [Unknown]
  - Pain [Unknown]

NARRATIVE: CASE EVENT DATE: 20200110
